FAERS Safety Report 5109629-9 (Version None)
Quarter: 2006Q3

REPORT INFORMATION
  Report Type: 
  Country: None (occurrence: None)
  Receive Date: 20060918
  Receipt Date: 20060906
  Transmission Date: 20061208
  Serious: Yes (Hospitalization, Other)
  Sender: FDA-Public Use
  Company Number: 2006082829

PATIENT
  Age: 40 Year
  Sex: Female

DRUGS (3)
  1. AZULFIDINE EN-TABS [Suspect]
     Indication: RHEUMATOID ARTHRITIS
     Dosage: 1000 MG (500 MG, 2 IN 1 D), ORAL
     Route: 048
     Dates: start: 20060412, end: 20060531
  2. LORCAN (LORNOXICAM) [Concomitant]
  3. MUCOSTA (REBAMIPIDE) [Concomitant]

REACTIONS (6)
  - ANAPHYLACTIC SHOCK [None]
  - BLOOD TEST ABNORMAL [None]
  - HYPERSENSITIVITY [None]
  - LIVER DISORDER [None]
  - PYREXIA [None]
  - VIRAL INFECTION [None]
